FAERS Safety Report 15009422 (Version 1)
Quarter: 2018Q2

REPORT INFORMATION
  Report Type: Spontaneous
  Country: US (occurrence: US)
  Receive Date: 20180614
  Receipt Date: 20180614
  Transmission Date: 20180711
  Serious: No
  Sender: FDA-Public Use
  Company Number: US-JNJFOC-20180542814

PATIENT
  Age: 22 Year
  Sex: Male

DRUGS (1)
  1. INVEGA TRINZA [Suspect]
     Active Substance: PALIPERIDONE PALMITATE
     Indication: SCHIZOAFFECTIVE DISORDER
     Route: 030

REACTIONS (5)
  - Erectile dysfunction [Unknown]
  - Weight increased [Unknown]
  - Off label use [Unknown]
  - Blood prolactin increased [Unknown]
  - Product use in unapproved indication [Unknown]
